FAERS Safety Report 11311567 (Version 4)
Quarter: 2017Q1

REPORT INFORMATION
  Report Type: Report from Study
  Country: JP (occurrence: JP)
  Receive Date: 20150727
  Receipt Date: 20170303
  Transmission Date: 20170428
  Serious: Yes (Hospitalization)
  Sender: FDA-Public Use
  Company Number: JP-BRISTOL-MYERS SQUIBB COMPANY-BMS-2015-048463

PATIENT
  Age: 68 Year
  Sex: Female
  Weight: 60 kg

DRUGS (56)
  1. ONEALFA [Concomitant]
     Active Substance: ALFACALCIDOL
     Indication: HYPOTHYROIDISM
     Dosage: 0.25 ?G, BID
     Route: 048
     Dates: start: 20140714
  2. HALFDIGOXIN [Concomitant]
     Active Substance: DIGOXIN
     Indication: HYPERTENSION
     Dosage: 0.125 MG, QD
     Route: 048
     Dates: end: 20150215
  3. RHYTHMY [Concomitant]
     Active Substance: RILMAZAFONE HYDROCHLORIDE
     Indication: INSOMNIA
     Dosage: 1 MG, QD
     Route: 048
     Dates: start: 20140723, end: 20140724
  4. CALFINA [Concomitant]
     Active Substance: ALFACALCIDOL
     Indication: HYPOTHYROIDISM
     Dosage: 0.25 ?G, BID
     Route: 048
     Dates: start: 20140722, end: 20140814
  5. HEPAFLUSH [Concomitant]
     Active Substance: HEPARIN SODIUM
     Indication: PRODUCT USED FOR UNKNOWN INDICATION
     Dosage: 100 UNIT, QD
     Route: 042
     Dates: start: 20140828, end: 20140828
  6. HEPAFLUSH [Concomitant]
     Active Substance: HEPARIN SODIUM
     Indication: PRODUCT USED FOR UNKNOWN INDICATION
     Dosage: 100 UNIT, QD
     Route: 042
     Dates: start: 20150518, end: 20150518
  7. XALATAN [Concomitant]
     Active Substance: LATANOPROST
     Indication: NORMAL TENSION GLAUCOMA
     Route: 065
  8. GASTER [Concomitant]
     Active Substance: FAMOTIDINE
     Indication: PRODUCT USED FOR UNKNOWN INDICATION
     Dosage: 20 MG, QD
     Route: 042
     Dates: start: 20141002, end: 20141002
  9. HEPAFLUSH [Concomitant]
     Active Substance: HEPARIN SODIUM
     Indication: PRODUCT USED FOR UNKNOWN INDICATION
     Dosage: 100 UNIT, QD
     Route: 042
     Dates: start: 20140731, end: 20140731
  10. HEPAFLUSH [Concomitant]
     Active Substance: HEPARIN SODIUM
     Indication: PRODUCT USED FOR UNKNOWN INDICATION
     Dosage: 100 UNIT, QD
     Route: 042
     Dates: start: 20141002, end: 20141002
  11. HALFDIGOXIN [Concomitant]
     Active Substance: DIGOXIN
     Indication: ANGINA PECTORIS
     Route: 065
  12. AMLODIPINE                         /00972402/ [Concomitant]
     Active Substance: AMLODIPINE BESYLATE
     Indication: PRODUCT USED FOR UNKNOWN INDICATION
     Dosage: 5 MG, QD
     Route: 065
  13. MAGMITT [Concomitant]
     Active Substance: MAGNESIUM OXIDE
     Indication: CONSTIPATION
     Route: 065
  14. PACLITAXEL. [Concomitant]
     Active Substance: PACLITAXEL
     Indication: PRODUCT USED FOR UNKNOWN INDICATION
     Dosage: 123 MG, QD
     Route: 042
     Dates: start: 20140814, end: 20140814
  15. PACLITAXEL. [Concomitant]
     Active Substance: PACLITAXEL
     Indication: PRODUCT USED FOR UNKNOWN INDICATION
     Dosage: 123 MG, QD
     Route: 042
     Dates: start: 20141002, end: 20141002
  16. HEPAFLUSH [Concomitant]
     Active Substance: HEPARIN SODIUM
     Indication: PRODUCT USED FOR UNKNOWN INDICATION
     Dosage: 100 UNIT, QD
     Route: 042
     Dates: start: 20140807, end: 20140807
  17. HEPAFLUSH [Concomitant]
     Active Substance: HEPARIN SODIUM
     Indication: PRODUCT USED FOR UNKNOWN INDICATION
     Dosage: 100 UNIT, QD
     Route: 042
     Dates: start: 20150209, end: 20150209
  18. REBAMIPIDE [Concomitant]
     Active Substance: REBAMIPIDE
     Indication: CHRONIC GASTRITIS
     Dosage: 100 MG, TID
     Route: 048
  19. PACLITAXEL. [Concomitant]
     Active Substance: PACLITAXEL
     Indication: PRODUCT USED FOR UNKNOWN INDICATION
     Dosage: 123 MG, QD
     Route: 042
     Dates: start: 20140807, end: 20140807
  20. HEPAFLUSH [Concomitant]
     Active Substance: HEPARIN SODIUM
     Indication: PRODUCT USED FOR UNKNOWN INDICATION
     Dosage: 100 UNIT, QD
     Route: 042
     Dates: start: 20140814, end: 20140814
  21. HEPAFLUSH [Concomitant]
     Active Substance: HEPARIN SODIUM
     Indication: PRODUCT USED FOR UNKNOWN INDICATION
     Dosage: 100 UNIT, QD
     Route: 042
     Dates: start: 20140821, end: 20140821
  22. HEPAFLUSH [Concomitant]
     Active Substance: HEPARIN SODIUM
     Indication: PRODUCT USED FOR UNKNOWN INDICATION
     Dosage: 100 UNIT, QD
     Route: 042
     Dates: start: 20141009, end: 20141009
  23. HEPAFLUSH [Concomitant]
     Active Substance: HEPARIN SODIUM
     Indication: PRODUCT USED FOR UNKNOWN INDICATION
     Dosage: 100 UNIT, QD
     Route: 042
     Dates: start: 20150608, end: 20150608
  24. SPIRONOLACTONE. [Concomitant]
     Active Substance: SPIRONOLACTONE
     Indication: HYPERTENSION
     Dosage: 25 MG, QD
     Route: 048
  25. AMLODIPINE                         /00972402/ [Concomitant]
     Active Substance: AMLODIPINE BESYLATE
     Indication: HYPERTENSION
     Dosage: 2.5 MG, QD
     Route: 048
     Dates: end: 20150208
  26. HYALEIN [Concomitant]
     Active Substance: HYALURONATE SODIUM
     Indication: NORMAL TENSION GLAUCOMA
     Route: 065
  27. CHLOR-TRIMETON [Concomitant]
     Active Substance: CHLORPHENIRAMINE MALEATE
     Indication: PRODUCT USED FOR UNKNOWN INDICATION
     Dosage: 10 MG, QD
     Route: 058
     Dates: start: 20141009, end: 20141009
  28. PACLITAXEL. [Concomitant]
     Active Substance: PACLITAXEL
     Indication: PRODUCT USED FOR UNKNOWN INDICATION
     Dosage: 123 MG, QD
     Route: 042
     Dates: start: 20140821, end: 20140821
  29. PACLITAXEL. [Concomitant]
     Active Substance: PACLITAXEL
     Indication: PRODUCT USED FOR UNKNOWN INDICATION
     Dosage: 123 MG, QD
     Route: 042
     Dates: start: 20140904, end: 20140904
  30. PACLITAXEL. [Concomitant]
     Active Substance: PACLITAXEL
     Indication: PRODUCT USED FOR UNKNOWN INDICATION
     Dosage: 123 MG, QD
     Route: 042
     Dates: start: 20141009, end: 20141009
  31. HEPAFLUSH [Concomitant]
     Active Substance: HEPARIN SODIUM
     Indication: PRODUCT USED FOR UNKNOWN INDICATION
     Dosage: 100 UNIT, QD
     Route: 042
     Dates: start: 20140723, end: 20140723
  32. HEPAFLUSH [Concomitant]
     Active Substance: HEPARIN SODIUM
     Indication: PRODUCT USED FOR UNKNOWN INDICATION
     Dosage: 100 UNIT, QD
     Route: 042
     Dates: start: 20140918, end: 20140918
  33. HEPAFLUSH [Concomitant]
     Active Substance: HEPARIN SODIUM
     Indication: PRODUCT USED FOR UNKNOWN INDICATION
     Dosage: 100 UNIT, QD
     Route: 042
     Dates: start: 20150302, end: 20150302
  34. HEPAFLUSH [Concomitant]
     Active Substance: HEPARIN SODIUM
     Indication: PRODUCT USED FOR UNKNOWN INDICATION
     Dosage: 100 UNIT, QD
     Route: 042
     Dates: start: 20150427, end: 20150427
  35. HALFDIGOXIN [Concomitant]
     Active Substance: DIGOXIN
     Indication: HYPOTHYROIDISM
     Dosage: 0.062 MG, QD
     Route: 065
  36. PACLITAXEL. [Concomitant]
     Active Substance: PACLITAXEL
     Indication: PRODUCT USED FOR UNKNOWN INDICATION
     Dosage: 123 MG, QD
     Route: 042
     Dates: start: 20140828, end: 20140828
  37. HEPAFLUSH [Concomitant]
     Active Substance: HEPARIN SODIUM
     Indication: PRODUCT USED FOR UNKNOWN INDICATION
     Dosage: 100 UNIT, QD
     Route: 042
     Dates: start: 20140904, end: 20140904
  38. HEPAFLUSH [Concomitant]
     Active Substance: HEPARIN SODIUM
     Indication: PRODUCT USED FOR UNKNOWN INDICATION
     Dosage: 100 UNIT, QD
     Route: 042
     Dates: start: 20150413, end: 20150413
  39. APIXABAN [Suspect]
     Active Substance: APIXABAN
     Indication: THROMBOSIS PROPHYLAXIS
     Dosage: 5 MG, BID
     Route: 048
     Dates: start: 20140714, end: 20141021
  40. THYRADIN-S [Concomitant]
     Active Substance: LEVOTHYROXINE
     Indication: HYPOTHYROIDISM
     Dosage: 62.5 ?G, QD
     Route: 048
     Dates: start: 20140714
  41. ACECOL                             /01140001/ [Concomitant]
     Active Substance: ACECLOFENAC
     Indication: HYPERTENSION
     Dosage: 2 MG, QD
     Route: 048
  42. ITOROL [Concomitant]
     Active Substance: ISOSORBIDE MONONITRATE
     Indication: ANGINA PECTORIS
     Dosage: 20 MG, BID
     Route: 048
  43. MAGMITT [Concomitant]
     Active Substance: MAGNESIUM OXIDE
     Indication: BREAST CANCER
     Dosage: 330 MG, QD
     Route: 048
     Dates: start: 20140725, end: 20140810
  44. DEXAMETHASONE. [Concomitant]
     Active Substance: DEXAMETHASONE
     Indication: PRODUCT USED FOR UNKNOWN INDICATION
     Dosage: 825 MG, QD
     Route: 042
     Dates: start: 20141009, end: 20141009
  45. PACLITAXEL. [Concomitant]
     Active Substance: PACLITAXEL
     Indication: BREAST CANCER
     Dosage: 123 MG, QD
     Route: 042
     Dates: start: 20140723, end: 20140723
  46. PACLITAXEL. [Concomitant]
     Active Substance: PACLITAXEL
     Indication: PRODUCT USED FOR UNKNOWN INDICATION
     Dosage: 123 MG, QD
     Route: 042
     Dates: start: 20140912, end: 20140912
  47. PACLITAXEL. [Concomitant]
     Active Substance: PACLITAXEL
     Indication: PRODUCT USED FOR UNKNOWN INDICATION
     Dosage: 123 MG, QD
     Route: 042
     Dates: start: 20140918, end: 20140918
  48. HEPAFLUSH [Concomitant]
     Active Substance: HEPARIN SODIUM
     Indication: PRODUCT USED FOR UNKNOWN INDICATION
     Dosage: 100 UNIT, QD
     Route: 042
     Dates: start: 20150119, end: 20150119
  49. HEPAFLUSH [Concomitant]
     Active Substance: HEPARIN SODIUM
     Indication: PRODUCT USED FOR UNKNOWN INDICATION
     Dosage: 100 UNIT, QD
     Route: 042
     Dates: start: 20150427, end: 20150427
  50. XALATAN [Concomitant]
     Active Substance: LATANOPROST
     Indication: CATARACT
     Dosage: UNK, QD
     Route: 047
  51. HYALEIN [Concomitant]
     Active Substance: HYALURONATE SODIUM
     Indication: CATARACT
     Dosage: UNK, QID
     Route: 048
  52. HERCEPTIN [Concomitant]
     Active Substance: TRASTUZUMAB
     Indication: BREAST CANCER
     Dosage: 360 MG, QD
     Route: 042
     Dates: start: 20150608, end: 20150608
  53. PACLITAXEL. [Concomitant]
     Active Substance: PACLITAXEL
     Indication: PRODUCT USED FOR UNKNOWN INDICATION
     Dosage: 123 MG, QD
     Route: 042
     Dates: start: 20140731, end: 20140731
  54. PACLITAXEL. [Concomitant]
     Active Substance: PACLITAXEL
     Indication: PRODUCT USED FOR UNKNOWN INDICATION
     Dosage: 123 MG, QD
     Route: 042
     Dates: start: 20140925, end: 20140925
  55. HEPAFLUSH [Concomitant]
     Active Substance: HEPARIN SODIUM
     Indication: PRODUCT USED FOR UNKNOWN INDICATION
     Dosage: 100 UNIT, QD
     Route: 042
     Dates: start: 20140912, end: 20140912
  56. HEPAFLUSH [Concomitant]
     Active Substance: HEPARIN SODIUM
     Indication: PRODUCT USED FOR UNKNOWN INDICATION
     Dosage: 100 UNIT, QD
     Route: 042
     Dates: start: 20150323, end: 20150323

REACTIONS (2)
  - Surgery [Unknown]
  - Hypertension [Recovered/Resolved]

NARRATIVE: CASE EVENT DATE: 20141022
